FAERS Safety Report 12111340 (Version 1)
Quarter: 2016Q1

REPORT INFORMATION
  Report Type: Spontaneous
  Country: IT (occurrence: IT)
  Receive Date: 20160224
  Receipt Date: 20160224
  Transmission Date: 20160526
  Serious: Yes (Hospitalization)
  Sender: FDA-Public Use
  Company Number: IT-ABBVIE-16P-083-1562774-00

PATIENT
  Age: 69 Year
  Sex: Male

DRUGS (3)
  1. VIEKIRAX [Suspect]
     Active Substance: OMBITASVIR\PARITAPREVIR\RITONAVIR
     Indication: HEPATITIS C ANTIBODY POSITIVE
     Route: 048
     Dates: start: 20160201, end: 20160205
  2. EXVIERA [Suspect]
     Active Substance: DASABUVIR
     Indication: HEPATITIS C ANTIBODY POSITIVE
     Route: 048
     Dates: start: 20160201, end: 20160205
  3. REBETOL [Suspect]
     Active Substance: RIBAVIRIN
     Indication: HEPATITIS C ANTIBODY POSITIVE
     Route: 048
     Dates: start: 20160201, end: 20160205

REACTIONS (4)
  - Jaundice cholestatic [Unknown]
  - Acute kidney injury [Unknown]
  - Ascites [Unknown]
  - Hepatic failure [Unknown]

NARRATIVE: CASE EVENT DATE: 20160205
